FAERS Safety Report 15465017 (Version 2)
Quarter: 2019Q2

REPORT INFORMATION
  Report Type: Spontaneous
  Country: CA (occurrence: CA)
  Receive Date: 20181004
  Receipt Date: 20190412
  Transmission Date: 20190711
  Serious: Yes (Other)
  Sender: FDA-Public Use
  Company Number: CA-PFIZER INC-2018398537

PATIENT
  Sex: Male

DRUGS (5)
  1. FENTANYL. [Concomitant]
     Active Substance: FENTANYL
     Dosage: UNK
  2. COCAINE [Concomitant]
     Active Substance: COCAINE
     Dosage: UNK
  3. METAMFETAMINE [Concomitant]
     Active Substance: METHAMPHETAMINE
     Dosage: UNK
  4. HYDROMORPHONE HYDROCHLORIDE. [Suspect]
     Active Substance: HYDROMORPHONE HYDROCHLORIDE
     Indication: DRUG WITHDRAWAL MAINTENANCE THERAPY
     Dosage: 50 MG/ML, 2X/DAY
     Route: 042
  5. HYDROMORPHONE HYDROCHLORIDE. [Interacting]
     Active Substance: HYDROMORPHONE HYDROCHLORIDE
     Indication: DRUG DEPENDENCE

REACTIONS (5)
  - Tremor [Recovered/Resolved]
  - Drug interaction [Recovered/Resolved]
  - Dyskinesia [Recovered/Resolved]
  - Dysphemia [Recovered/Resolved]
  - Psychotic disorder [Recovered/Resolved]
